FAERS Safety Report 21685025 (Version 2)
Quarter: 2023Q1

REPORT INFORMATION
  Report Type: Spontaneous
  Country: US (occurrence: None)
  Receive Date: 20221206
  Receipt Date: 20230117
  Transmission Date: 20230418
  Serious: No
  Sender: FDA-Public Use
  Company Number: 2022A387310

PATIENT
  Age: 22800 Day
  Sex: Female
  Weight: 108.9 kg

DRUGS (2)
  1. FASENRA [Suspect]
     Active Substance: BENRALIZUMAB
     Indication: Asthma
     Dosage: 30MG/ML EVERY EIGHT WEEKS
     Route: 058
     Dates: start: 2021
  2. FASENRA [Suspect]
     Active Substance: BENRALIZUMAB
     Indication: Asthma
     Dosage: 30MG/ML EVERY EIGHT WEEKS
     Route: 058
     Dates: start: 20221122

REACTIONS (3)
  - Metamorphopsia [Recovered/Resolved]
  - Headache [Recovering/Resolving]
  - Aura [Recovering/Resolving]

NARRATIVE: CASE EVENT DATE: 20221122
